FAERS Safety Report 11343077 (Version 1)
Quarter: 2015Q3

REPORT INFORMATION
  Report Type: Spontaneous
  Country: DE (occurrence: DE)
  Receive Date: 20150805
  Receipt Date: 20150805
  Transmission Date: 20151125
  Serious: Yes (Hospitalization)
  Sender: FDA-Public Use
  Company Number: DE-ASTRAZENECA-2015SE74286

PATIENT
  Age: 68 Year
  Sex: Female

DRUGS (9)
  1. CALCIUM CARBONATE. [Concomitant]
     Active Substance: CALCIUM CARBONATE
  2. HYDROCHLOROTHIAZIDE. [Interacting]
     Active Substance: HYDROCHLOROTHIAZIDE
     Dosage: 25 DF DAILY, NON ASTRAZENECA PRODUCT
  3. METOPROLOL [Interacting]
     Active Substance: METOPROLOL
  4. CIPRALEX [Suspect]
     Active Substance: ESCITALOPRAM OXALATE
     Indication: DEPRESSION
     Route: 065
     Dates: start: 20100618, end: 20100624
  5. SEROQUEL [Interacting]
     Active Substance: QUETIAPINE FUMARATE
     Route: 048
     Dates: start: 20100513
  6. L-THYROXIN [Concomitant]
     Active Substance: LEVOTHYROXINE SODIUM
  7. MIRTAZAPINE. [Interacting]
     Active Substance: MIRTAZAPINE
     Route: 065
  8. LORAZEPAM. [Concomitant]
     Active Substance: LORAZEPAM
     Dates: start: 20100518
  9. RALOXIFENE HYDROCHLORIDE. [Concomitant]
     Active Substance: RALOXIFENE HYDROCHLORIDE

REACTIONS (3)
  - Drug interaction [Unknown]
  - Dystonia [Recovered/Resolved]
  - Fall [Unknown]

NARRATIVE: CASE EVENT DATE: 20100622
